FAERS Safety Report 6318513-4 (Version None)
Quarter: 2009Q3

REPORT INFORMATION
  Report Type: 
  Country: None (occurrence: None)
  Receive Date: 20090821
  Receipt Date: 20090812
  Transmission Date: 20100115
  Serious: Yes (Hospitalization, Other)
  Sender: FDA-Public Use
  Company Number: ZA-ALLERGAN-0910826US

PATIENT
  Age: 67 Year
  Sex: Male

DRUGS (4)
  1. DEXAMETHASONE 0.7 MG IMP [Suspect]
     Indication: DIABETIC RETINAL OEDEMA
     Dosage: 0.7 MG, SINGLE
     Route: 031
     Dates: start: 20080925, end: 20080925
  2. DEXAMETHASONE 0.7 MG IMP [Suspect]
     Dosage: 0.7 MG, SINGLE
     Route: 031
     Dates: start: 20090722, end: 20090722
  3. GLUCOPHAGE [Concomitant]
  4. NOVOMIX [Concomitant]

REACTIONS (1)
  - MACULOPATHY [None]
